FAERS Safety Report 6063914-5 (Version None)
Quarter: 2009Q1

REPORT INFORMATION
  Report Type: 
  Country: None (occurrence: None)
  Receive Date: 20090204
  Receipt Date: 20090122
  Transmission Date: 20090719
  Serious: Yes (Other)
  Sender: FDA-Public Use
  Company Number: PHHY2009BR02621

PATIENT
  Sex: Female

DRUGS (1)
  1. SLOW-K [Suspect]
     Dosage: 600 MG, UNK

REACTIONS (4)
  - DRUG DEPENDENCE [None]
  - HYPERSENSITIVITY [None]
  - SKIN NODULE [None]
  - WEIGHT DECREASED [None]
